FAERS Safety Report 9712759 (Version 2)
Quarter: 2014Q2

REPORT INFORMATION
  Report Type: Spontaneous
  Country: US (occurrence: US)
  Receive Date: 20131126
  Receipt Date: 20140510
  Transmission Date: 20141212
  Serious: No
  Sender: FDA-Public Use
  Company Number: US-BRISTOL-MYERS SQUIBB COMPANY-19231687

PATIENT
  Age: 59 Year
  Sex: Female
  Weight: 90.25 kg

DRUGS (9)
  1. BYDUREON [Suspect]
     Indication: TYPE 2 DIABETES MELLITUS
     Route: 058
     Dates: start: 2013
  2. MICARDIS [Concomitant]
  3. METFORMIN [Concomitant]
  4. ATORVASTATIN [Concomitant]
  5. HYDROCHLOROTHIAZIDE [Concomitant]
  6. ASMANEX [Concomitant]
  7. BYSTOLIC [Concomitant]
  8. CETIRIZINE [Concomitant]
  9. TRAZODONE HCL [Concomitant]

REACTIONS (3)
  - Underdose [Unknown]
  - Product quality issue [Unknown]
  - Decreased appetite [Unknown]
